FAERS Safety Report 18451855 (Version 2)
Quarter: 2021Q1

REPORT INFORMATION
  Report Type: Spontaneous
  Country: JP (occurrence: JP)
  Receive Date: 20201102
  Receipt Date: 20210121
  Transmission Date: 20210419
  Serious: Yes (Death, Life-Threatening, Hospitalization, Other)
  Sender: FDA-Public Use
  Company Number: JP-009507513-2010JPN001576J

PATIENT
  Age: 85 Year
  Sex: Female
  Weight: 41 kg

DRUGS (5)
  1. KEYTRUDA [Suspect]
     Active Substance: PEMBROLIZUMAB
     Indication: ADENOCARCINOMA OF COLON
     Dosage: 200 MILLIGRAM, Q3W
     Route: 041
     Dates: start: 20201013, end: 20201013
  2. NAIXAN [Suspect]
     Active Substance: NAPROXEN SODIUM
     Indication: TUMOUR ASSOCIATED FEVER
     Dosage: 200 MILLIGRAM, TID
     Route: 048
     Dates: start: 20201014, end: 20201018
  3. MAGMITT [Suspect]
     Active Substance: MAGNESIUM OXIDE
     Dosage: 500 MILLIGRAM, TID
     Route: 048
     Dates: start: 20201012, end: 20201017
  4. LEVOFLOXACIN HEMIHYDRATE [Suspect]
     Active Substance: LEVOFLOXACIN
     Indication: TUMOUR ASSOCIATED FEVER
     Dosage: 500 MILLIGRAM, QD
     Route: 048
     Dates: start: 20201014, end: 20201016
  5. SODIUM RABEPRAZOLE [Suspect]
     Active Substance: RABEPRAZOLE SODIUM
     Dosage: 10 MILLIGRAM, QD
     Route: 048
     Dates: start: 20201014, end: 20201018

REACTIONS (8)
  - Acute respiratory distress syndrome [Unknown]
  - Tumour associated fever [Unknown]
  - Interstitial lung disease [Not Recovered/Not Resolved]
  - C-reactive protein increased [Unknown]
  - Melaena [Fatal]
  - Pyrexia [Recovered/Resolved]
  - Infusion related reaction [Unknown]
  - Pain in extremity [Unknown]

NARRATIVE: CASE EVENT DATE: 20201013
